FAERS Safety Report 20129129 (Version 2)
Quarter: 2021Q4

REPORT INFORMATION
  Report Type: Spontaneous
  Country: IT (occurrence: IT)
  Receive Date: 20211130
  Receipt Date: 20211220
  Transmission Date: 20220303
  Serious: Yes (Other)
  Sender: FDA-Public Use
  Company Number: IT-ASTELLAS-2021US045629

PATIENT
  Age: 21 Year
  Sex: Male
  Weight: 48.073 kg

DRUGS (3)
  1. TACROLIMUS [Suspect]
     Active Substance: TACROLIMUS
     Indication: Focal segmental glomerulosclerosis
     Dosage: 0.1 MG/KG, TWICE DAILY (MAINTAINING SERUM RANGE OF 4-6 NG/DL)
     Route: 065
  2. PREDNISONE [Concomitant]
     Active Substance: PREDNISONE
     Indication: Focal segmental glomerulosclerosis
     Route: 065
  3. CANAKINUMAB [Concomitant]
     Active Substance: CANAKINUMAB
     Indication: PSTPIP1-associated myeloid-related proteinaemia inflammatory syndrome
     Route: 065

REACTIONS (3)
  - Kidney fibrosis [Unknown]
  - Product use in unapproved indication [Unknown]
  - Off label use [Unknown]
